FAERS Safety Report 7028311-4 (Version None)
Quarter: 2010Q4

REPORT INFORMATION
  Report Type: 
  Country: None (occurrence: None)
  Receive Date: 20101005
  Receipt Date: 20100924
  Transmission Date: 20110411
  Serious: Yes (Other)
  Sender: FDA-Public Use
  Company Number: JP-ROCHE-718991

PATIENT
  Sex: Female
  Weight: 49 kg

DRUGS (7)
  1. TOCILIZUMAB [Suspect]
     Indication: RHEUMATOID ARTHRITIS
     Dosage: DRUG DISCONTINUED
     Route: 041
     Dates: start: 20090511
  2. RIMATIL [Concomitant]
     Route: 048
  3. PREDONINE [Concomitant]
     Route: 048
  4. ZANTAC [Concomitant]
     Dosage: DRUG: RANITIDINE HYDROCHLORIDE
     Route: 048
  5. METHYCOBAL [Concomitant]
     Route: 048
  6. CALCIUM LACTATE [Concomitant]
     Route: 048
  7. ALFAROL [Concomitant]
     Dosage: DOSE FORM: UNCERTAINTY
     Route: 048

REACTIONS (1)
  - DIARRHOEA [None]
